FAERS Safety Report 26053072 (Version 1)
Quarter: 2025Q4

REPORT INFORMATION
  Report Type: Spontaneous
  Country: US (occurrence: US)
  Receive Date: 20251117
  Receipt Date: 20251117
  Transmission Date: 20260118
  Serious: No
  Sender: GLAUKOS
  Company Number: US-GLK-000702

PATIENT
  Age: 79 Year
  Sex: Male

DRUGS (2)
  1. IDOSE TR [Suspect]
     Active Substance: TRAVOPROST
     Indication: Product used for unknown indication
     Dosage: OPERATED ON RIGHT EYE (OD)
     Route: 047
     Dates: start: 20250825, end: 20250825
  2. IDOSE TR [Suspect]
     Active Substance: TRAVOPROST

REACTIONS (17)
  - Erythema of eyelid [Unknown]
  - Eyelid margin crusting [Unknown]
  - Eyelid irritation [Unknown]
  - Iritis [Recovered/Resolved]
  - Eyelid irritation [Unknown]
  - Cystoid macular oedema [Unknown]
  - Eyelid margin crusting [Unknown]
  - Hordeolum [Unknown]
  - Photophobia [Unknown]
  - Erythema of eyelid [Unknown]
  - Visual acuity reduced [Unknown]
  - Medical device removal [Unknown]
  - Vision blurred [Unknown]
  - Vision blurred [Unknown]
  - Cystoid macular oedema [Unknown]
  - Photophobia [Unknown]
  - Blepharitis [Unknown]

NARRATIVE: CASE EVENT DATE: 20250822
